FAERS Safety Report 10167486 (Version 1)
Quarter: 2014Q2

REPORT INFORMATION
  Report Type: Spontaneous
  Country: SE (occurrence: SE)
  Receive Date: 20140512
  Receipt Date: 20140512
  Transmission Date: 20141212
  Serious: Yes (Hospitalization)
  Sender: FDA-Public Use
  Company Number: SE-ABBVIE-14P-150-1236292-00

PATIENT
  Age: 57 Year
  Sex: Female
  Weight: 61 kg

DRUGS (3)
  1. KLACID (NEXIUM HP) [Suspect]
     Indication: PRODUCT USED FOR UNKNOWN INDICATION
     Dates: start: 20140410, end: 20140411
  2. NEXIUM [Suspect]
     Indication: PRODUCT USED FOR UNKNOWN INDICATION
     Dates: start: 20140410, end: 20140411
  3. AMOXICILLIN [Suspect]
     Indication: PRODUCT USED FOR UNKNOWN INDICATION
     Dates: start: 20140410, end: 20140411

REACTIONS (7)
  - Hypertension [Recovered/Resolved]
  - Heart rate increased [Recovered/Resolved]
  - Abdominal distension [Recovered/Resolved]
  - Abdominal pain [Recovered/Resolved]
  - Diarrhoea [Recovered/Resolved]
  - Nausea [Recovered/Resolved]
  - Fatigue [Recovered/Resolved]
